FAERS Safety Report 8560741-1 (Version None)
Quarter: 2012Q3

REPORT INFORMATION
  Report Type: 
  Country: None (occurrence: None)
  Receive Date: 20120802
  Receipt Date: 20120730
  Transmission Date: 20120928
  Serious: Yes (Death, Hospitalization, Other)
  Sender: FDA-Public Use
  Company Number: PHHY2012US065625

PATIENT
  Age: 61 Year
  Sex: Male

DRUGS (1)
  1. ISONIAZID [Suspect]
     Indication: LATENT TUBERCULOSIS
     Dosage: 300 MG, UNK

REACTIONS (12)
  - HEPATIC FAILURE [None]
  - BLOOD BILIRUBIN ABNORMAL [None]
  - ENCEPHALOPATHY [None]
  - DRUG-INDUCED LIVER INJURY [None]
  - DEPRESSED LEVEL OF CONSCIOUSNESS [None]
  - METABOLIC ACIDOSIS [None]
  - ABDOMINAL PAIN [None]
  - JAUNDICE [None]
  - VISUAL IMPAIRMENT [None]
  - DECREASED APPETITE [None]
  - TRANSAMINASES INCREASED [None]
  - SHOCK [None]
